FAERS Safety Report 7429530-5 (Version None)
Quarter: 2011Q2

REPORT INFORMATION
  Report Type: 
  Country: None (occurrence: None)
  Receive Date: 20110421
  Receipt Date: 20110415
  Transmission Date: 20111010
  Serious: Yes (Hospitalization)
  Sender: FDA-Public Use
  Company Number: A0897026A

PATIENT
  Age: 57 Year
  Sex: Male
  Weight: 110.9 kg

DRUGS (9)
  1. ZOCOR [Concomitant]
  2. ZETIA [Concomitant]
  3. TRENTAL [Concomitant]
  4. DIOVAN HCT [Concomitant]
  5. TRAZODONE HCL [Concomitant]
  6. PRILOSEC [Concomitant]
  7. CELEXA [Concomitant]
  8. AVANDIA [Suspect]
     Indication: TYPE 2 DIABETES MELLITUS
     Dosage: 8MG PER DAY
     Route: 048
     Dates: start: 20030717, end: 20070702
  9. CLONAZEPAM [Concomitant]

REACTIONS (4)
  - MYOCARDIAL ISCHAEMIA [None]
  - ARTERIOSCLEROSIS [None]
  - CHEST PAIN [None]
  - CEREBROVASCULAR ACCIDENT [None]
